FAERS Safety Report 21330654 (Version 1)
Quarter: 2022Q3

REPORT INFORMATION
  Report Type: Spontaneous
  Country: US (occurrence: None)
  Receive Date: 20220913
  Receipt Date: 20220913
  Transmission Date: 20221027
  Serious: Yes (Hospitalization)
  Sender: FDA-Public Use
  Company Number: None

PATIENT
  Age: 72 Year
  Sex: Male

DRUGS (1)
  1. WARFARIN SODIUM [Suspect]
     Active Substance: WARFARIN SODIUM

REACTIONS (4)
  - Haemorrhage intracranial [None]
  - Syncope [None]
  - Loss of consciousness [None]
  - Subdural haematoma [None]

NARRATIVE: CASE EVENT DATE: 20220520
